FAERS Safety Report 6867871-0 (Version None)
Quarter: 2010Q3

REPORT INFORMATION
  Report Type: 
  Country: None (occurrence: None)
  Receive Date: 20100722
  Receipt Date: 20080430
  Transmission Date: 20110219
  Serious: No
  Sender: FDA-Public Use
  Company Number: US-PFIZER INC-2008039382

PATIENT
  Sex: Female
  Weight: 90.7 kg

DRUGS (5)
  1. CHANTIX [Suspect]
     Indication: SMOKING CESSATION THERAPY
     Dates: start: 20080424
  2. TRAMADOL [Concomitant]
  3. DOXYCYCLINE [Concomitant]
  4. IBUPROFEN [Concomitant]
  5. MIFEPREX [Concomitant]

REACTIONS (1)
  - PRURITUS GENERALISED [None]
